FAERS Safety Report 8244810-1 (Version None)
Quarter: 2012Q1

REPORT INFORMATION
  Report Type: 
  Country: None (occurrence: None)
  Receive Date: 20120329
  Receipt Date: 20110502
  Transmission Date: 20120608
  Serious: No
  Sender: FDA-Public Use
  Company Number: US-MYLANLABS-2011S1009134

PATIENT
  Age: 45 Year
  Sex: Female

DRUGS (4)
  1. OXYCODONE HCL [Concomitant]
     Indication: BREAKTHROUGH PAIN
  2. LYRICA [Concomitant]
     Indication: PAIN IN EXTREMITY
  3. FENTANYL-100 [Suspect]
     Indication: INTERVERTEBRAL DISC DEGENERATION
     Dosage: CHANGED Q72H
     Route: 062
  4. FENTANYL-100 [Suspect]
     Indication: SPINAL COLUMN STENOSIS
     Dosage: CHANGED Q72H
     Route: 062

REACTIONS (8)
  - DRUG EFFECT DECREASED [None]
  - PAIN [None]
  - DRUG SCREEN NEGATIVE [None]
  - TREMOR [None]
  - DISTURBANCE IN ATTENTION [None]
  - NAUSEA [None]
  - RESTLESSNESS [None]
  - HYPERHIDROSIS [None]
